FAERS Safety Report 8922486 (Version 2)
Quarter: 2013Q1

REPORT INFORMATION
  Report Type: Spontaneous
  Country: FR (occurrence: FR)
  Receive Date: 20121123
  Receipt Date: 20130104
  Transmission Date: 20140127
  Serious: Yes (Other)
  Sender: FDA-Public Use
  Company Number: FR-ABBOTT-12P-056-1007847-00

PATIENT
  Age: 40 None
  Sex: Female
  Weight: 54 kg

DRUGS (4)
  1. HUMIRA [Suspect]
     Indication: CROHN^S DISEASE
     Dosage: 160MG THEN 80 MG THEN 40MG
     Route: 058
     Dates: start: 20110201, end: 20120920
  2. IMUREL [Concomitant]
     Indication: CROHN^S DISEASE
     Route: 048
     Dates: start: 2011
  3. KARDEGIC [Concomitant]
     Indication: ARTERITIS
     Route: 048
     Dates: start: 2009
  4. ESOMEPRAZOLE (INEXIUM) [Concomitant]
     Indication: PRODUCT USED FOR UNKNOWN INDICATION
     Route: 048

REACTIONS (4)
  - Renal tubular necrosis [Not Recovered/Not Resolved]
  - Renal impairment [Not Recovered/Not Resolved]
  - Vasculitis [Not Recovered/Not Resolved]
  - Cutaneous vasculitis [Not Recovered/Not Resolved]
